FAERS Safety Report 5485001-7 (Version None)
Quarter: 2007Q4

REPORT INFORMATION
  Report Type: 
  Country: None (occurrence: None)
  Receive Date: 20071015
  Receipt Date: 20070723
  Transmission Date: 20080405
  Serious: Yes (Hospitalization)
  Sender: FDA-Public Use
  Company Number: NO-NOVOPROD-268368

PATIENT
  Sex: Female

DRUGS (4)
  1. ACTIVELLE [Suspect]
     Route: 048
  2. PARALGIN FORTE                     /00116401/ [Suspect]
     Dosage: LESS THAN 3 TABLETS A DAY
     Route: 048
  3. PARACET [Suspect]
     Route: 048
  4. CITALOPRAM [Suspect]
     Indication: DEPRESSION
     Dosage: DIVERGENT INFORMATION IN REPORT; BOTH 10MG PER DAY AND 30 MG PER DAY MENTIONED
     Route: 048

REACTIONS (3)
  - ABDOMINAL PAIN LOWER [None]
  - LIVER DISORDER [None]
  - VOMITING [None]
